FAERS Safety Report 6109781-2 (Version None)
Quarter: 2009Q1

REPORT INFORMATION
  Report Type: 
  Country: None (occurrence: None)
  Receive Date: 20090310
  Receipt Date: 20080501
  Transmission Date: 20090719
  Serious: No
  Sender: FDA-Public Use
  Company Number: A0725823A

PATIENT
  Age: 75 Year
  Sex: Male

DRUGS (1)
  1. NICORETTE (MINT) [Suspect]
     Dates: start: 20080430

REACTIONS (2)
  - FATIGUE [None]
  - PRODUCT QUALITY ISSUE [None]
